FAERS Safety Report 23063584 (Version 4)
Quarter: 2024Q1

REPORT INFORMATION
  Report Type: Spontaneous
  Country: US (occurrence: US)
  Receive Date: 20231013
  Receipt Date: 20240319
  Transmission Date: 20240410
  Serious: No
  Sender: FDA-Public Use
  Company Number: US-BIOGEN-2023BI01181433

PATIENT
  Age: 43 Year
  Sex: Female

DRUGS (3)
  1. VUMERITY [Suspect]
     Active Substance: DIROXIMEL FUMARATE
     Indication: Multiple sclerosis
     Route: 050
     Dates: start: 20201211
  2. VUMERITY [Suspect]
     Active Substance: DIROXIMEL FUMARATE
     Dosage: BACK DOWN TO 1-231 MG CAPSULE BY MOUTH TWO TIMES A DAY ON 08/2022.
     Route: 050
     Dates: start: 202110
  3. VUMERITY [Suspect]
     Active Substance: DIROXIMEL FUMARATE
     Dosage: 2 CAPSULES IN PM, 1 CAPSULE IN AM
     Route: 050

REACTIONS (10)
  - Prescribed overdose [Unknown]
  - Gastric ulcer [Not Recovered/Not Resolved]
  - White blood cell count decreased [Unknown]
  - Multiple sclerosis relapse [Recovered/Resolved]
  - SARS-CoV-2 test positive [Unknown]
  - Gastrooesophageal reflux disease [Unknown]
  - Lipids decreased [Recovered/Resolved]
  - Flushing [Not Recovered/Not Resolved]
  - Lymphocyte count decreased [Not Recovered/Not Resolved]
  - Vomiting [Unknown]

NARRATIVE: CASE EVENT DATE: 20211001
